FAERS Safety Report 9198680 (Version 1)
Quarter: 2013Q1

REPORT INFORMATION
  Report Type: Spontaneous
  Country: US (occurrence: None)
  Receive Date: 20130327
  Receipt Date: 20130327
  Transmission Date: 20140127
  Serious: Yes (Other)
  Sender: FDA-Public Use
  Company Number: None

PATIENT
  Age: 63 Year
  Sex: Female
  Weight: 77.57 kg

DRUGS (3)
  1. TYKERB 250 MG GLAXOSMITHKLEIN [Suspect]
     Dosage: 250MGX5 QD PO
     Route: 048
     Dates: start: 201301, end: 201303
  2. TYKERB 250 MG GLAXOSMITHKLEIN [Suspect]
     Dosage: 250MGX5 QD PO
     Route: 048
     Dates: start: 201301, end: 201303
  3. TYKERB 250 MG GLAXOSMITHKLEIN [Suspect]
     Dosage: 250MGX5 QD PO
     Route: 048
     Dates: start: 201301, end: 201303

REACTIONS (1)
  - Hepatic enzyme increased [None]
